FAERS Safety Report 10178266 (Version 3)
Quarter: 2014Q2

REPORT INFORMATION
  Report Type: Spontaneous
  Country: JP (occurrence: JP)
  Receive Date: 20140519
  Receipt Date: 20140604
  Transmission Date: 20141212
  Serious: Yes (Life-Threatening, Other)
  Sender: FDA-Public Use
  Company Number: PHHY2014JP039279

PATIENT
  Age: 77 Year
  Sex: Male
  Weight: 60 kg

DRUGS (3)
  1. ZOMETA [Suspect]
     Indication: METASTASES TO BONE
     Dosage: 4 MG, EVERY FOUR WEEKS
     Route: 041
     Dates: start: 20080930, end: 20100514
  2. LEUPLIN [Concomitant]
     Indication: PROSTATE CANCER
     Dosage: UNK UKN, UNK
     Route: 058
     Dates: start: 20080507, end: 20120106
  3. CASODEX [Concomitant]
     Indication: PROSTATE CANCER
     Dosage: 80 MG, UNK
     Route: 048
     Dates: start: 20090120, end: 20120131

REACTIONS (11)
  - Platelet count decreased [Recovered/Resolved]
  - Eating disorder [Recovered/Resolved]
  - Gingival bleeding [Recovering/Resolving]
  - Herpes zoster [Unknown]
  - Osteonecrosis of jaw [Recovering/Resolving]
  - Erythema [Unknown]
  - Pain [Unknown]
  - Tenderness [Unknown]
  - Swelling [Unknown]
  - Dysgeusia [Not Recovered/Not Resolved]
  - Malaise [Unknown]
